FAERS Safety Report 5718584-X (Version None)
Quarter: 2008Q2

REPORT INFORMATION
  Report Type: 
  Country: None (occurrence: None)
  Receive Date: 20080425
  Receipt Date: 20080416
  Transmission Date: 20081010
  Serious: Yes (Hospitalization, Other)
  Sender: FDA-Public Use
  Company Number: US-PFIZER INC-2008016687

PATIENT
  Sex: Male
  Weight: 19.181 kg

DRUGS (5)
  1. SILDENAFIL CITRATE [Interacting]
     Indication: PULMONARY HYPERTENSION
     Dates: start: 20070905, end: 20080312
  2. NORVASC [Suspect]
  3. ASPIRIN [Interacting]
     Indication: PULMONARY HYPERTENSION
     Dates: start: 20070904, end: 20071205
  4. OXYGEN [Concomitant]
  5. XOPENEX [Concomitant]

REACTIONS (16)
  - CHEST X-RAY ABNORMAL [None]
  - COUGH [None]
  - DIARRHOEA [None]
  - DRUG HYPERSENSITIVITY [None]
  - DRUG INEFFECTIVE [None]
  - DRUG INTERACTION [None]
  - HYPOXIA [None]
  - NEUTROPHIL COUNT INCREASED [None]
  - PNEUMONIA PRIMARY ATYPICAL [None]
  - PROTEIN TOTAL DECREASED [None]
  - RASH PRURITIC [None]
  - RESPIRATORY TRACT INFECTION VIRAL [None]
  - TRICUSPID VALVE INCOMPETENCE [None]
  - URTICARIA [None]
  - VENTRICULAR DYSFUNCTION [None]
  - WHITE BLOOD CELL COUNT INCREASED [None]
